FAERS Safety Report 9840312 (Version 1)
Quarter: 2014Q1

REPORT INFORMATION
  Report Type: Spontaneous
  Country: US (occurrence: US)
  Receive Date: 20140124
  Receipt Date: 20140124
  Transmission Date: 20141002
  Serious: No
  Sender: FDA-Public Use
  Company Number: US-JNJFOC-20140107395

PATIENT
  Age: 70 Year
  Sex: Female
  Weight: 66.68 kg

DRUGS (13)
  1. DURAGESIC [Suspect]
     Indication: PAIN
     Route: 062
     Dates: start: 20140104
  2. TRAMADOL [Concomitant]
     Indication: HEADACHE
     Route: 048
     Dates: start: 201306
  3. LABETALOL [Concomitant]
     Indication: BLOOD PRESSURE
     Route: 048
     Dates: start: 2012
  4. NEXIUM [Concomitant]
     Indication: GASTROOESOPHAGEAL REFLUX DISEASE
     Route: 048
     Dates: start: 2012
  5. AMLODIPINE [Concomitant]
     Indication: PRODUCT USED FOR UNKNOWN INDICATION
     Route: 048
     Dates: start: 2012
  6. ZETIA [Concomitant]
     Indication: BLOOD CHOLESTEROL ABNORMAL
     Route: 048
     Dates: start: 2013
  7. LOSARTAN [Concomitant]
     Indication: PRODUCT USED FOR UNKNOWN INDICATION
     Route: 048
     Dates: start: 2013
  8. CHLORDIAZEPOXIDE [Concomitant]
     Indication: ANXIETY
     Route: 048
     Dates: start: 2013
  9. CILOSTAZOL [Concomitant]
     Indication: BLOOD PRESSURE
     Route: 048
     Dates: start: 2013
  10. CLONIDINE [Concomitant]
     Indication: BLOOD PRESSURE
     Route: 065
     Dates: start: 2013
  11. ASPIRIN [Concomitant]
     Indication: ANTICOAGULANT THERAPY
     Route: 048
  12. MAGNESIUM [Concomitant]
     Indication: PRODUCT USED FOR UNKNOWN INDICATION
     Route: 048
  13. FISH OIL [Concomitant]
     Indication: PRODUCT USED FOR UNKNOWN INDICATION
     Route: 048

REACTIONS (5)
  - Product adhesion issue [Recovered/Resolved]
  - Product adhesion issue [Unknown]
  - Product quality issue [Unknown]
  - Poor quality drug administered [Unknown]
  - Inappropriate schedule of drug administration [Recovered/Resolved]
